FAERS Safety Report 5703012-0 (Version None)
Quarter: 2008Q2

REPORT INFORMATION
  Report Type: 
  Country: None (occurrence: None)
  Receive Date: 20080411
  Receipt Date: 20080331
  Transmission Date: 20081010
  Serious: Yes (Other)
  Sender: FDA-Public Use
  Company Number: JP-ROCHE-550632

PATIENT
  Sex: Male
  Weight: 64 kg

DRUGS (7)
  1. PEGASYS [Suspect]
     Route: 058
     Dates: start: 20040421, end: 20061220
  2. PEGASYS [Suspect]
     Route: 058
     Dates: start: 20061227
  3. URSO 250 [Concomitant]
     Route: 048
  4. AMLODIN [Concomitant]
     Route: 048
  5. NU-LOTAN [Concomitant]
     Route: 048
  6. LOPRESSOR [Concomitant]
     Route: 048
  7. ALPRAZOLAM [Concomitant]
     Route: 048

REACTIONS (2)
  - CEREBRAL INFARCTION [None]
  - MULTIPLE SCLEROSIS [None]
